FAERS Safety Report 14276859 (Version 1)
Quarter: 2017Q4

REPORT INFORMATION
  Report Type: Spontaneous
  Country: AU (occurrence: AU)
  Receive Date: 20171212
  Receipt Date: 20171212
  Transmission Date: 20180321
  Serious: Yes (Other)
  Sender: FDA-Public Use
  Company Number: AU-BAXTER-2017BAX038324

PATIENT
  Age: 42 Year
  Sex: Female

DRUGS (6)
  1. BAXTER 0.9% SODIUM CHLORIDE 450MG_50ML INJECTION BP BAG AHB1306_AHB136 [Suspect]
     Active Substance: SODIUM CHLORIDE
     Route: 042
     Dates: start: 20171103, end: 20171105
  2. BAXTER 0.9% SODIUM CHLORIDE 450MG_50ML INJECTION BP BAG AHB1306_AHB136 [Suspect]
     Active Substance: SODIUM CHLORIDE
     Indication: MEDICATION DILUTION
     Route: 042
     Dates: start: 20171025
  3. CERNEVIT [Suspect]
     Active Substance: VITAMINS
     Indication: GASTROINTESTINAL HYPOMOTILITY
     Dosage: HICKMANN^S LINE, DOSE: 1 AMPOULE COMPOUNDED WITH 1000 ML 0.9% NACL AT 500 ML/HR
     Route: 042
     Dates: start: 20171103, end: 20171105
  4. CERNEVIT [Suspect]
     Active Substance: VITAMINS
     Dosage: HICKMANN^S LINE, DOSE: 1 AMPOULE COMPOUNDED WITH 1000 ML 0.9% NACL, 800ML INFUSED OUT OF 1000ML
     Route: 042
     Dates: start: 20171108, end: 20171108
  5. BAXTER 0.9% SODIUM CHLORIDE 450MG_50ML INJECTION BP BAG AHB1306_AHB136 [Suspect]
     Active Substance: SODIUM CHLORIDE
     Dosage: 800 ML OF 0.9% NORMAL SALINE AND CERNEVIT
     Route: 042
     Dates: start: 20171108, end: 20171108
  6. CERNEVIT [Suspect]
     Active Substance: VITAMINS
     Indication: MALNUTRITION
     Dosage: HICKMANN^S LINE, DOSE: 1 AMPOULE COMPOUNDED WITH 100 ML NORMAL SALINE RUN OVER 30 MINS
     Route: 042
     Dates: start: 20171025

REACTIONS (9)
  - Head discomfort [Recovered/Resolved]
  - Headache [Recovered/Resolved]
  - Pharyngeal paraesthesia [Recovered/Resolved]
  - Lip swelling [Recovered/Resolved]
  - Flushing [Recovered/Resolved]
  - Throat tightness [Recovered/Resolved]
  - Paraesthesia [Recovered/Resolved]
  - Flushing [Recovered/Resolved]
  - Pruritus [Recovered/Resolved]

NARRATIVE: CASE EVENT DATE: 20171102
